FAERS Safety Report 15315197 (Version 1)
Quarter: 2018Q3

REPORT INFORMATION
  Report Type: Spontaneous
  Country: US (occurrence: US)
  Receive Date: 20180815
  Receipt Date: 20180815
  Transmission Date: 20181010
  Serious: Yes (Hospitalization)
  Sender: FDA-Public Use
  Company Number: None

PATIENT
  Age: 66 Year
  Sex: Female
  Weight: 73.03 kg

DRUGS (1)
  1. ALTEPLASE. [Suspect]
     Active Substance: ALTEPLASE

REACTIONS (7)
  - Cough [None]
  - Dysphagia [None]
  - Nausea [None]
  - Anaphylactic reaction [None]
  - Dyspnoea [None]
  - Vomiting [None]
  - Throat tightness [None]

NARRATIVE: CASE EVENT DATE: 20180814
